FAERS Safety Report 6058167-8 (Version None)
Quarter: 2009Q1

REPORT INFORMATION
  Report Type: 
  Country: None (occurrence: None)
  Receive Date: 20090127
  Receipt Date: 20090115
  Transmission Date: 20090719
  Serious: Yes (Congenital Anomaly)
  Sender: FDA-Public Use
  Company Number: GXKR2009CH00948

PATIENT
  Sex: Female
  Weight: 2.4 kg

DRUGS (3)
  1. CITALOPRAM ECOSOL (NGX) (CITALOPRAM) FILM-COATED TABLET [Suspect]
     Dosage: TRANSPLACENTAL
     Route: 064
  2. TEGRETOL [Suspect]
     Dosage: TRANSPLACENTAL
     Route: 064
  3. FOLIC ACID [Concomitant]

REACTIONS (4)
  - DRUG EXPOSURE DURING PREGNANCY [None]
  - MATERNAL DRUGS AFFECTING FOETUS [None]
  - PREMATURE BABY [None]
  - TALIPES [None]
